FAERS Safety Report 4772839-4 (Version None)
Quarter: 2005Q3

REPORT INFORMATION
  Report Type: 
  Country: None (occurrence: None)
  Receive Date: 20050919
  Receipt Date: 20050908
  Transmission Date: 20060218
  Serious: Yes (Other)
  Sender: FDA-Public Use
  Company Number: GB-JNJFOC-20050805222

PATIENT
  Sex: Male

DRUGS (11)
  1. ZYDOL [Suspect]
     Indication: PAIN PROPHYLAXIS
     Route: 048
  2. MADOPAR [Concomitant]
     Route: 048
  3. MADOPAR [Concomitant]
     Indication: PARKINSON'S DISEASE
     Route: 048
  4. ASPIRIN [Concomitant]
     Route: 048
  5. CALCICHEW D3 FORTE [Concomitant]
     Indication: OSTEOPOROSIS
     Route: 048
  6. FINASTERIDE [Concomitant]
     Route: 048
  7. DIGOXIN [Concomitant]
     Indication: ATRIAL FIBRILLATION
     Route: 048
  8. LANSOPRAZOLE [Concomitant]
     Route: 048
  9. PARACETAMOL [Concomitant]
     Indication: PAIN
     Route: 048
  10. CITALOPRAM [Concomitant]
     Route: 048
  11. MIRTAZAPINE [Concomitant]
     Route: 065

REACTIONS (2)
  - HYPONATRAEMIA [None]
  - INAPPROPRIATE ANTIDIURETIC HORMONE SECRETION [None]
